FAERS Safety Report 4276436-9 (Version None)
Quarter: 2004Q1

REPORT INFORMATION
  Report Type: 
  Country: None (occurrence: None)
  Receive Date: 20040116
  Receipt Date: 20040109
  Transmission Date: 20041129
  Serious: Yes (Other)
  Sender: FDA-Public Use
  Company Number: 200410145BCC

PATIENT
  Age: 29 Year
  Sex: Male

DRUGS (4)
  1. E.S. BAYER BACK + BODY PAIN [Suspect]
     Dosage: ONCE, ORAL
     Route: 048
     Dates: start: 20040108
  2. DIPHENHYDRAMINE HCL [Suspect]
     Dosage: 200 MG, TOTAL DAILY, ORAL
     Route: 048
     Dates: start: 20040108
  3. KLONOPIN [Suspect]
     Dosage: 2.0 MG, TOTAL DAILY, ORAL
     Route: 048
     Dates: start: 20040108
  4. EXTRA STRENGTH TYLENOL [Suspect]
     Dosage: 2000 MG, TOTAL DAILY, ORAL
     Route: 048
     Dates: start: 20040108

REACTIONS (3)
  - ABDOMINAL PAIN UPPER [None]
  - MULTIPLE DRUG OVERDOSE [None]
  - SOMNOLENCE [None]
